FAERS Safety Report 20186711 (Version 1)
Quarter: 2021Q4

REPORT INFORMATION
  Report Type: Report from Study
  Country: DE (occurrence: DE)
  Receive Date: 20211215
  Receipt Date: 20211215
  Transmission Date: 20220303
  Serious: Yes (Hospitalization, Other)
  Sender: FDA-Public Use
  Company Number: DE-SHIRE-SPV1-2012-00319

PATIENT
  Age: 18 Year
  Sex: Male

DRUGS (6)
  1. IDURSULFASE [Suspect]
     Active Substance: IDURSULFASE
     Indication: Mucopolysaccharidosis II
     Dosage: 0.5 MG/KG, 1X/WEEK
     Route: 041
     Dates: start: 20060906
  2. IDURSULFASE [Suspect]
     Active Substance: IDURSULFASE
     Dosage: 0.53 MILLIGRAM/KILOGRAM, 1/WEEK
     Route: 042
     Dates: start: 20121119
  3. LAMOTRIGINE [Concomitant]
     Active Substance: LAMOTRIGINE
     Indication: Nervous system disorder
     Dosage: 125 MG, 2X/DAY:BID
     Route: 048
     Dates: start: 20101201
  4. TAVOR                              /00273201/ [Concomitant]
     Indication: Sleep disorder
     Dosage: 1 MG, AS REQ^D
     Route: 060
     Dates: start: 20100729
  5. MOVICOL                            /01625101/ [Concomitant]
     Indication: Gastrointestinal disorder
     Dosage: 2 DF, 1X/DAY:QD
     Route: 048
     Dates: start: 2009
  6. GENISTEIN [Concomitant]
     Active Substance: GENISTEIN
     Indication: Product used for unknown indication
     Dosage: 8 MG, 2X/DAY:BID
     Route: 048
     Dates: start: 2010

REACTIONS (7)
  - Dehydration [Recovered/Resolved]
  - Blood creatinine increased [Recovered/Resolved]
  - Dysuria [Recovered/Resolved with Sequelae]
  - Hypertonic bladder [Recovered/Resolved with Sequelae]
  - Gastroenteritis [Unknown]
  - Pneumonia [Recovered/Resolved]
  - Respiratory failure [Recovered/Resolved]

NARRATIVE: CASE EVENT DATE: 20111129
